FAERS Safety Report 8156908-7 (Version None)
Quarter: 2012Q1

REPORT INFORMATION
  Report Type: 
  Country: None (occurrence: None)
  Receive Date: 20120222
  Receipt Date: 20120216
  Transmission Date: 20120608
  Serious: Yes (Death)
  Sender: FDA-Public Use
  Company Number: US-ACTELION-A-NJ2012-60811

PATIENT

DRUGS (11)
  1. CITALOPRAM HYDROBROMIDE [Concomitant]
  2. FLONASE [Concomitant]
  3. FENOFIBRATE [Concomitant]
  4. LASIX [Concomitant]
  5. GLIPIZIDE [Concomitant]
  6. PREDNISONE [Concomitant]
  7. SIMVASTATIN [Concomitant]
  8. ASPIRIN [Concomitant]
  9. LISINOPRIL [Concomitant]
  10. METOPROLOL TARTRATE [Concomitant]
  11. TRACLEER [Suspect]
     Indication: PULMONARY ARTERIAL HYPERTENSION
     Dosage: 125 MG, BID
     Route: 048
     Dates: start: 20070824, end: 20120206

REACTIONS (4)
  - PULMONARY ARTERIAL HYPERTENSION [None]
  - DISEASE PROGRESSION [None]
  - CONCOMITANT DISEASE PROGRESSION [None]
  - PULMONARY FIBROSIS [None]
